FAERS Safety Report 10235773 (Version 1)
Quarter: 2014Q2

REPORT INFORMATION
  Report Type: Spontaneous
  Country: US (occurrence: None)
  Receive Date: 20140612
  Receipt Date: 20140612
  Transmission Date: 20141212
  Serious: Yes (Other)
  Sender: FDA-Public Use
  Company Number: None

PATIENT
  Age: 68 Year
  Sex: Female
  Weight: 68.95 kg

DRUGS (1)
  1. PROLIA [Suspect]
     Indication: OSTEOPOROSIS
     Dosage: INJECTION EVERY 6 MONTHS OVER EVERY 6 MONTH, APPLIED TO A SURFACE, USUALLY THE SKIN
     Dates: start: 20140603

REACTIONS (4)
  - Arthralgia [None]
  - Arthralgia [None]
  - Arthralgia [None]
  - Arthralgia [None]
